FAERS Safety Report 20438493 (Version 3)
Quarter: 2022Q1

REPORT INFORMATION
  Report Type: Report from Study
  Country: US (occurrence: US)
  Receive Date: 20220207
  Receipt Date: 20220304
  Transmission Date: 20220423
  Serious: No
  Sender: FDA-Public Use
  Company Number: US-NOVARTISTESTPH-NVSC2022US025268

PATIENT

DRUGS (1)
  1. ENTRESTO [Suspect]
     Active Substance: SACUBITRIL\VALSARTAN
     Indication: Cardiac failure chronic
     Dosage: 1 DOSAGE FORM, QD (24/26) MG
     Route: 065
     Dates: start: 202201

REACTIONS (3)
  - Blood viscosity decreased [Unknown]
  - Epistaxis [Recovered/Resolved]
  - Sluggishness [Recovering/Resolving]
